FAERS Safety Report 25031762 (Version 1)
Quarter: 2025Q1

REPORT INFORMATION
  Report Type: Spontaneous
  Country: US (occurrence: None)
  Receive Date: 20250301
  Receipt Date: 20250301
  Transmission Date: 20250408
  Serious: No
  Sender: FDA-CTU
  Company Number: None

PATIENT
  Age: 47 Year
  Sex: Female
  Weight: 58.5 kg

DRUGS (1)
  1. TRETINOIN [Suspect]
     Active Substance: TRETINOIN
     Indication: Antioxidant therapy
     Dosage: 30 GRAMS AT BEDTIME TOPICAL
     Route: 061

REACTIONS (5)
  - Myalgia [None]
  - Negative thoughts [None]
  - Migraine [None]
  - Intracranial pressure increased [None]
  - Muscle tightness [None]

NARRATIVE: CASE EVENT DATE: 20250120
